FAERS Safety Report 5968689-3 (Version None)
Quarter: 2008Q4

REPORT INFORMATION
  Report Type: 
  Country: None (occurrence: None)
  Receive Date: 20081121
  Receipt Date: 20081121
  Transmission Date: 20090506
  Serious: Yes (Other)
  Sender: FDA-Public Use
  Company Number: None

PATIENT
  Age: 53 Year
  Sex: Female
  Weight: 78.9259 kg

DRUGS (1)
  1. LEVAQUIN [Suspect]
     Indication: BRONCHITIS
     Dosage: 1 DAILY PO
     Route: 048
     Dates: start: 20081112, end: 20081118

REACTIONS (7)
  - ARTHRALGIA [None]
  - CHEST PAIN [None]
  - FAECES DISCOLOURED [None]
  - FEELING ABNORMAL [None]
  - GAIT DISTURBANCE [None]
  - MOVEMENT DISORDER [None]
  - PAIN IN EXTREMITY [None]
